FAERS Safety Report 19502755 (Version 1)
Quarter: 2021Q3

REPORT INFORMATION
  Report Type: Spontaneous
  Country: US (occurrence: US)
  Receive Date: 20210707
  Receipt Date: 20210707
  Transmission Date: 20211014
  Serious: No
  Sender: FDA-Public Use
  Company Number: US-UPSHER-SMITH LABORATORIES, LLC-2021USL00329

PATIENT
  Age: 81 Year
  Sex: Female

DRUGS (2)
  1. PROPAFENONE HYDROCHLORIDE. [Suspect]
     Active Substance: PROPAFENONE HYDROCHLORIDE
     Indication: ATRIAL FIBRILLATION
     Dosage: 225 MG, 2X/DAY
     Route: 048
     Dates: start: 20201216, end: 20210408
  2. ELIQUIS [Concomitant]
     Active Substance: APIXABAN

REACTIONS (9)
  - Swollen tongue [Recovering/Resolving]
  - Malnutrition [Unknown]
  - Tongue biting [Not Recovered/Not Resolved]
  - Oral pain [Not Recovered/Not Resolved]
  - Gingival blister [Not Recovered/Not Resolved]
  - Tongue injury [Not Recovered/Not Resolved]
  - Stomatitis [Not Recovered/Not Resolved]
  - Dysphagia [Recovering/Resolving]
  - Dry mouth [Not Recovered/Not Resolved]

NARRATIVE: CASE EVENT DATE: 2021
